FAERS Safety Report 7081289-X (Version None)
Quarter: 2010Q4

REPORT INFORMATION
  Report Type: 
  Country: None (occurrence: None)
  Receive Date: 20101103
  Receipt Date: 20101103
  Transmission Date: 20110411
  Serious: Yes (Other)
  Sender: FDA-Public Use
  Company Number: SE-JNJFOC-20101005975

PATIENT
  Age: 25 Year
  Sex: Female

DRUGS (9)
  1. CONCERTA [Suspect]
     Indication: ATTENTION DEFICIT/HYPERACTIVITY DISORDER
  2. RITALIN [Suspect]
     Indication: ILL-DEFINED DISORDER
     Route: 065
  3. FLUOXETINE HCL [Concomitant]
     Route: 065
  4. ZYPREXA [Concomitant]
     Route: 065
  5. PROPAVAN [Concomitant]
     Route: 065
  6. PREDNISOLON [Concomitant]
     Dosage: DOSE CANNOT BE LOWERED
     Route: 065
  7. INHALER NOS [Concomitant]
     Indication: RESPIRATORY DISORDER
     Route: 065
  8. MYCOSTATIN [Concomitant]
     Route: 065
  9. UNKNOWN MEDICATION [Concomitant]
     Route: 065

REACTIONS (6)
  - ABDOMINAL PAIN [None]
  - DYSPNOEA [None]
  - FATIGUE [None]
  - LUNG DISORDER [None]
  - OXYGEN SATURATION DECREASED [None]
  - RELAPSING FEVER [None]
